FAERS Safety Report 6491920-5 (Version None)
Quarter: 2009Q4

REPORT INFORMATION
  Report Type: 
  Country: None (occurrence: None)
  Receive Date: 20091208
  Receipt Date: 20091203
  Transmission Date: 20100525
  Serious: Yes (Other)
  Sender: FDA-Public Use
  Company Number: SPV1-2009-02286

PATIENT
  Age: 58 Year
  Sex: Male
  Weight: 72 kg

DRUGS (3)
  1. XAGRID(ANAGRELIDE HYDROCHLORIDE) CAPSULE [Suspect]
     Indication: ESSENTIAL THROMBOCYTHAEMIA
     Dosage: 1 MG, 3X/DAY;TID, ORAL; 1 MG, 2X/DAY;BID (GRADUALLY INCREASED, ACCORDING TO BID, ORAL
     Route: 048
     Dates: start: 20021101, end: 20040901
  2. XAGRID(ANAGRELIDE HYDROCHLORIDE) CAPSULE [Suspect]
     Indication: ESSENTIAL THROMBOCYTHAEMIA
     Dosage: 1 MG, 3X/DAY;TID, ORAL; 1 MG, 2X/DAY;BID (GRADUALLY INCREASED, ACCORDING TO BID, ORAL
     Route: 048
     Dates: start: 20040901, end: 20090301
  3. XAGRID(ANAGRELIDE HYDROCHLORIDE) CAPSULE [Suspect]
     Indication: ESSENTIAL THROMBOCYTHAEMIA
     Dosage: 1 MG, 3X/DAY;TID, ORAL; 1 MG, 2X/DAY;BID (GRADUALLY INCREASED, ACCORDING TO BID, ORAL
     Route: 048
     Dates: start: 20090301

REACTIONS (2)
  - GLOMERULONEPHRITIS [None]
  - TUBULOINTERSTITIAL NEPHRITIS [None]
